FAERS Safety Report 8887567 (Version 1)
Quarter: 2012Q4

REPORT INFORMATION
  Report Type: Spontaneous
  Country: CZ (occurrence: None)
  Receive Date: 20121031
  Receipt Date: 20121031
  Transmission Date: 20130627
  Serious: Yes (Other)
  Sender: FDA-Public Use
  Company Number: CZ-025175

PATIENT

DRUGS (3)
  1. BUSULFAN [Suspect]
     Indication: STEM CELL TRANSPLANT
  2. FLUDARABINE [Suspect]
     Indication: STEM CELL TRANSPLANT
  3. ANTI-THYMOCYTE GLOBULIN (RABBIT) NOS [Suspect]
     Indication: STEM CELL TRANSPLANT

REACTIONS (1)
  - Nephropathy toxic [None]
